FAERS Safety Report 4339221-5 (Version None)
Quarter: 2004Q2

REPORT INFORMATION
  Report Type: 
  Country: None (occurrence: None)
  Receive Date: 20040414
  Receipt Date: 20040414
  Transmission Date: 20050107
  Serious: Yes (Other)
  Sender: FDA-Public Use
  Company Number: None

PATIENT
  Age: 64 Year
  Sex: Male
  Weight: 64.9 kg

DRUGS (2)
  1. FLUVASTATIN [Suspect]
  2. PRAVASTATIN [Suspect]

REACTIONS (1)
  - RASH [None]
